FAERS Safety Report 9685428 (Version 1)
Quarter: 2013Q4

REPORT INFORMATION
  Report Type: Spontaneous
  Country: US (occurrence: None)
  Receive Date: 20131112
  Receipt Date: 20131112
  Transmission Date: 20140711
  Serious: No
  Sender: FDA-Public Use
  Company Number: None

PATIENT
  Sex: Female

DRUGS (1)
  1. ORENCIA 125MG BRISTOL MYERS SQUIBB [Suspect]
     Indication: RHEUMATOID ARTHRITIS
     Dates: start: 20130509, end: 201311

REACTIONS (1)
  - Drug hypersensitivity [None]
